FAERS Safety Report 8129557-4 (Version None)
Quarter: 2012Q1

REPORT INFORMATION
  Report Type: 
  Country: None (occurrence: None)
  Receive Date: 20120210
  Receipt Date: 20120207
  Transmission Date: 20120608
  Serious: Yes (Death, Hospitalization)
  Sender: FDA-Public Use
  Company Number: US-GLAXOSMITHKLINE-A0858680A

PATIENT
  Age: 71 Year
  Sex: Male
  Weight: 120.5 kg

DRUGS (9)
  1. LOVASTATIN [Concomitant]
  2. LISINOPRIL [Concomitant]
  3. GLYBURIDE [Concomitant]
  4. ASPIRIN [Concomitant]
  5. AVANDIA [Suspect]
     Indication: DIABETES MELLITUS
     Dosage: 8MG IN THE MORNING
     Route: 048
     Dates: start: 20050101, end: 20070301
  6. METFORMIN HCL [Concomitant]
  7. GEMFIBROZIL [Concomitant]
  8. TRAMADOL HCL [Concomitant]
  9. LORATADINE [Concomitant]

REACTIONS (5)
  - ATRIOVENTRICULAR BLOCK [None]
  - CARDIAC PACEMAKER INSERTION [None]
  - CORONARY ARTERY DISEASE [None]
  - DEATH [None]
  - MYOCARDIAL INFARCTION [None]
